FAERS Safety Report 4676799-6 (Version None)
Quarter: 2005Q2

REPORT INFORMATION
  Report Type: 
  Country: None (occurrence: None)
  Receive Date: 20050527
  Receipt Date: 20050513
  Transmission Date: 20051028
  Serious: Yes (Hospitalization)
  Sender: FDA-Public Use
  Company Number: PHO 2005-010

PATIENT
  Age: 61 Year
  Sex: Female

DRUGS (10)
  1. PHOTOFRIN [Suspect]
     Indication: ADENOCARCINOMA
     Dosage: APPROX 110 MG IV
     Route: 042
     Dates: start: 20050502, end: 20050502
  2. ASTELIN [Concomitant]
  3. FLONASE [Concomitant]
  4. ZYRTEC [Concomitant]
  5. ALBUTEROL [Concomitant]
  6. ATROVENT [Concomitant]
  7. FLOVENT [Concomitant]
  8. TRAZODONE [Concomitant]
  9. CELEXA [Concomitant]
  10. LORAZEPAM [Concomitant]

REACTIONS (3)
  - DYSPNOEA [None]
  - FATIGUE [None]
  - MALAISE [None]
